FAERS Safety Report 17376380 (Version 1)
Quarter: 2020Q1

REPORT INFORMATION
  Report Type: Spontaneous
  Country: GR (occurrence: GR)
  Receive Date: 20200206
  Receipt Date: 20200206
  Transmission Date: 20200409
  Serious: Yes (Other)
  Sender: FDA-Public Use
  Company Number: GR-BAXTER-2020BAX002746

PATIENT
  Sex: Male
  Weight: 80 kg

DRUGS (9)
  1. PREDNISONE. [Suspect]
     Active Substance: PREDNISONE
     Indication: B-CELL LYMPHOMA
     Dosage: 5 CYCLES
     Route: 065
     Dates: start: 20190115, end: 20190501
  2. RITUXIMAB. [Suspect]
     Active Substance: RITUXIMAB
     Dosage: 5 CYCLES
     Route: 065
     Dates: start: 20190115, end: 20190501
  3. ENDOXAN 1000 MG - POWDER FOR SOLUTION FOR INJECTION [Suspect]
     Active Substance: CYCLOPHOSPHAMIDE
     Indication: B-CELL LYMPHOMA
     Dosage: 5 CYCLES
     Route: 065
     Dates: start: 20190115, end: 20190501
  4. RITUXIMAB. [Suspect]
     Active Substance: RITUXIMAB
     Route: 065
     Dates: start: 201912, end: 202001
  5. VINCRISTINE [Suspect]
     Active Substance: VINCRISTINE
     Indication: B-CELL LYMPHOMA
     Route: 065
     Dates: start: 20190115, end: 20190501
  6. RITUXIMAB. [Suspect]
     Active Substance: RITUXIMAB
     Indication: B-CELL LYMPHOMA
     Dosage: 2 CYCLES
     Route: 065
     Dates: start: 201906, end: 201908
  7. ETOPOSIDE. [Suspect]
     Active Substance: ETOPOSIDE
     Indication: B-CELL LYMPHOMA
     Dosage: 5 CYCLES
     Route: 065
     Dates: start: 20190115, end: 20190501
  8. DOXIL [Suspect]
     Active Substance: DOXORUBICIN HYDROCHLORIDE
     Indication: B-CELL LYMPHOMA
     Route: 065
     Dates: start: 20190115, end: 20190501
  9. DHAP [Suspect]
     Active Substance: CISPLATIN\CYTARABINE\DEXAMETHASONE
     Indication: B-CELL LYMPHOMA
     Dosage: 2 CYCLES
     Route: 065
     Dates: start: 201806, end: 201908

REACTIONS (1)
  - B-cell lymphoma recurrent [Unknown]
